FAERS Safety Report 8623574-3 (Version None)
Quarter: 2012Q3

REPORT INFORMATION
  Report Type: 
  Country: None (occurrence: None)
  Receive Date: 20120827
  Receipt Date: 20120816
  Transmission Date: 20120928
  Serious: Yes (Other)
  Sender: FDA-Public Use
  Company Number: JP-ASTELLAS-2012US007237

PATIENT
  Sex: Female

DRUGS (27)
  1. ERLOTINIB HYDROCHLORIDE [Suspect]
     Dosage: 50 MG, UID/QD
     Route: 048
     Dates: start: 20120428, end: 20120629
  2. GEMCITABINE HYDROCHLORIDE [Suspect]
     Dosage: 800 MG/M2, UID/QD
     Route: 041
     Dates: start: 20120518, end: 20120518
  3. FENTANYL CITRATE [Concomitant]
     Dosage: 2 MG, UID/QD
     Route: 062
     Dates: start: 20120525
  4. GEMCITABINE HYDROCHLORIDE [Suspect]
     Dosage: 800 MG/M2, UID/QD
     Route: 041
     Dates: start: 20120511, end: 20120511
  5. GEMCITABINE HYDROCHLORIDE [Suspect]
     Dosage: 800 MG/M2, UID/QD
     Route: 041
     Dates: start: 20120601, end: 20120601
  6. MORPHINE [Concomitant]
     Indication: PRODUCT USED FOR UNKNOWN INDICATION
     Dosage: 10 MG, UNKNOWN/D
     Route: 048
     Dates: end: 20120524
  7. DEXAMETHASONE SODIUM PHOSPHATE [Concomitant]
     Dosage: 6.6 MG, UID/QD
     Route: 042
     Dates: start: 20120608, end: 20120608
  8. DEXAMETHASONE SODIUM PHOSPHATE [Concomitant]
     Dosage: 6.6 MG, UID/QD
     Route: 042
     Dates: start: 20120706, end: 20120706
  9. GEMCITABINE HYDROCHLORIDE [Suspect]
     Indication: ADENOCARCINOMA PANCREAS
     Dosage: 1000 MG/M2, UID/QD
     Route: 041
     Dates: start: 20120330, end: 20120330
  10. GEMCITABINE HYDROCHLORIDE [Suspect]
     Dosage: 800 MG/M2, UID/QD
     Route: 041
     Dates: start: 20120608, end: 20120608
  11. GEMCITABINE HYDROCHLORIDE [Suspect]
     Dosage: 800 MG/M2, UID/QD
     Route: 041
     Dates: start: 20120706
  12. DEXAMETHASONE SODIUM PHOSPHATE [Concomitant]
     Dosage: 3.3 MG, UID/QD
     Route: 042
     Dates: start: 20120601, end: 20120601
  13. GEMCITABINE HYDROCHLORIDE [Suspect]
     Dosage: 800 MG/M2, UID/QD
     Route: 041
     Dates: start: 20120427, end: 20120427
  14. LANSOPRAZOLE [Concomitant]
     Indication: GASTRIC ULCER
     Dosage: 15 MG, UID/QD
     Route: 048
     Dates: end: 20120712
  15. FENTANYL CITRATE [Concomitant]
     Indication: PRODUCT USED FOR UNKNOWN INDICATION
     Dosage: 1 MG, UID/QD
     Route: 062
     Dates: end: 20120524
  16. DEXAMETHASONE SODIUM PHOSPHATE [Concomitant]
     Dosage: 3.3 MG, UID/QD
     Route: 042
     Dates: start: 20120511, end: 20120511
  17. DEXAMETHASONE SODIUM PHOSPHATE [Concomitant]
     Dosage: 3.3 MG, UID/QD
     Route: 042
     Dates: start: 20120518, end: 20120518
  18. LOXOPROFEN                         /00890702/ [Concomitant]
     Indication: PRODUCT USED FOR UNKNOWN INDICATION
     Dosage: 180 MG, UID/QD
     Route: 048
     Dates: start: 20120525, end: 20120615
  19. ERLOTINIB HYDROCHLORIDE [Suspect]
     Dosage: 50 MG, UID/QD
     Route: 048
     Dates: start: 20120707
  20. GASMOTIN [Concomitant]
     Indication: PRODUCT USED FOR UNKNOWN INDICATION
     Dosage: 15 MG, UID/QD
     Route: 048
  21. DEXAMETHASONE SODIUM PHOSPHATE [Concomitant]
     Indication: PRODUCT USED FOR UNKNOWN INDICATION
     Dosage: 3.3 MG, UID/QD
     Route: 042
     Dates: start: 20120330, end: 20120330
  22. DEXAMETHASONE SODIUM PHOSPHATE [Concomitant]
     Dosage: 3.3 MG, UID/QD
     Route: 042
     Dates: start: 20120427, end: 20120427
  23. ERLOTINIB HYDROCHLORIDE [Suspect]
     Indication: ADENOCARCINOMA PANCREAS
     Dosage: 100 MG, UID/QD
     Route: 048
     Dates: start: 20120331, end: 20120413
  24. GEMCITABINE HYDROCHLORIDE [Suspect]
     Dosage: 800 MG/M2, UID/QD
     Route: 041
     Dates: start: 20120615, end: 20120615
  25. HIRUDOID                           /00723701/ [Concomitant]
     Indication: PRODUCT USED FOR UNKNOWN INDICATION
     Dosage: UNK
     Route: 003
  26. DEXAMETHASONE SODIUM PHOSPHATE [Concomitant]
     Dosage: 6.6 MG, UID/QD
     Route: 042
     Dates: start: 20120615, end: 20120615
  27. OXINORM                            /00045603/ [Concomitant]
     Indication: PRODUCT USED FOR UNKNOWN INDICATION
     Dosage: 2.5 MG, UNKNOWN/D
     Route: 048
     Dates: start: 20120525

REACTIONS (9)
  - DIARRHOEA [None]
  - NAUSEA [None]
  - OEDEMA PERIPHERAL [None]
  - ANAEMIA [None]
  - DERMATITIS ACNEIFORM [None]
  - FATIGUE [None]
  - DECREASED APPETITE [None]
  - CHOLANGITIS [None]
  - NEUTROPHIL COUNT DECREASED [None]
